FAERS Safety Report 13110558 (Version 1)
Quarter: 2017Q1

REPORT INFORMATION
  Report Type: Spontaneous
  Country: US (occurrence: US)
  Receive Date: 20170112
  Receipt Date: 20170112
  Transmission Date: 20170428
  Serious: Yes (Hospitalization, Other)
  Sender: FDA-Public Use
  Company Number: US-ROCHE-1101326

PATIENT
  Sex: Male

DRUGS (6)
  1. TRIDIL [Concomitant]
     Active Substance: NITROGLYCERIN
     Route: 065
  2. LOPRESSOR [Concomitant]
     Active Substance: METOPROLOL TARTRATE
     Route: 065
  3. DOBUTAMINE [Concomitant]
     Active Substance: DOBUTAMINE\DOBUTAMINE HYDROCHLORIDE
     Route: 065
  4. ACTIVASE [Suspect]
     Active Substance: ALTEPLASE
     Indication: ACUTE MYOCARDIAL INFARCTION
     Route: 065
  5. LASIX [Concomitant]
     Active Substance: FUROSEMIDE
     Route: 065
  6. DOPAMINE [Concomitant]
     Active Substance: DOPAMINE\DOPAMINE HYDROCHLORIDE
     Route: 065

REACTIONS (6)
  - Hypotension [Unknown]
  - Pulmonary oedema [Unknown]
  - Bradycardia [Unknown]
  - Atrial fibrillation [Unknown]
  - Ventricular arrhythmia [Unknown]
  - Pyrexia [Unknown]
